FAERS Safety Report 9914698 (Version 1)
Quarter: 2014Q1

REPORT INFORMATION
  Report Type: Spontaneous
  Country: US (occurrence: US)
  Receive Date: 20140220
  Receipt Date: 20140220
  Transmission Date: 20141002
  Serious: Yes (Other)
  Sender: FDA-Public Use
  Company Number: US-TARO-2014P1001259

PATIENT
  Age: 85 Year
  Sex: Female
  Weight: 65.77 kg

DRUGS (4)
  1. CETIRIZINE [Suspect]
     Indication: RASH
  2. CALCIUM [Concomitant]
  3. LIPITOR [Concomitant]
  4. NORVASC [Concomitant]

REACTIONS (2)
  - Oedema mouth [Unknown]
  - Pharyngeal oedema [Unknown]
